FAERS Safety Report 4381577-1 (Version None)
Quarter: 2004Q2

REPORT INFORMATION
  Report Type: 
  Country: None (occurrence: None)
  Receive Date: 20040616
  Receipt Date: 20040602
  Transmission Date: 20050107
  Serious: Yes (Hospitalization)
  Sender: FDA-Public Use
  Company Number: 206698

PATIENT
  Age: 81 Year
  Sex: Male
  Weight: 56.1 kg

DRUGS (15)
  1. RITUXAN [Suspect]
     Indication: MANTLE CELL LYMPHOMA
     Dosage: 375 MG/M2, INTRAVENOUS
     Route: 042
     Dates: start: 20040331, end: 20040428
  2. CYCLOPHOSPHAMIDE [Suspect]
     Indication: MANTLE CELL LYMPHOMA
     Dosage: 300 MG/M2, Q12H, INTRAVENOUS
     Route: 042
     Dates: start: 20040304, end: 20040430
  3. DOXORUBICIN HYDROCHLORIDE [Suspect]
     Indication: MANTLE CELL LYMPHOMA
     Dosage: 50 MG/M2, INTRAVENOUS
     Route: 042
     Dates: start: 20040304, end: 20040429
  4. VINCRISTINE [Suspect]
     Indication: MANTLE CELL LYMPHOMA
     Dosage: 2 MG, INTRAVENOUS
     Route: 042
     Dates: start: 20040306, end: 20040430
  5. DECADRON [Suspect]
     Indication: MANTLE CELL LYMPHOMA
     Dosage: 40 MG, ORAL
     Route: 048
     Dates: start: 20040304, end: 20040501
  6. NEUPOGEN (FILGRASTIM) [Concomitant]
  7. EPOGEN [Concomitant]
  8. AEROBID [Concomitant]
  9. ALBUTEROL NEBULIZER (ALBUTEROL, ALBUTEROL SULFATE) [Concomitant]
  10. ALPRAZOLAM [Concomitant]
  11. COMBIVENT INHALER (ALBUTEROL, ALBUTEROL SULFATE, IPRATROPIUM BROMIDE) [Concomitant]
  12. BACTRIM DS [Concomitant]
  13. COLACE (DOCUSATE SODIUM) [Concomitant]
  14. SEREVENT DISKUS (SALMETEROL) [Concomitant]
  15. TYLENOL [Concomitant]

REACTIONS (3)
  - FEBRILE NEUTROPENIA [None]
  - PNEUMONIA PNEUMOCOCCAL [None]
  - WHITE BLOOD CELL COUNT DECREASED [None]
